FAERS Safety Report 4452294-4 (Version None)
Quarter: 2004Q3

REPORT INFORMATION
  Report Type: 
  Country: None (occurrence: None)
  Receive Date: 20040917
  Receipt Date: 20040813
  Transmission Date: 20050211
  Serious: Yes (Life-Threatening)
  Sender: FDA-Public Use
  Company Number: BE-ROCHE-377581

PATIENT
  Age: 55 Year
  Sex: Male

DRUGS (3)
  1. TICLID [Suspect]
     Route: 048
     Dates: start: 20020615, end: 20040801
  2. CANDESARTAN [Concomitant]
  3. HYDROCHLOROTHIAZIDE/TELMISARTAN [Concomitant]
     Route: 048
     Dates: start: 20020615

REACTIONS (7)
  - ASCITES [None]
  - LUPUS-LIKE SYNDROME [None]
  - OEDEMA PERIPHERAL [None]
  - PERICARDITIS CONSTRICTIVE [None]
  - PERICARDITIS LUPUS [None]
  - PLEURISY [None]
  - POLYSEROSITIS [None]
